FAERS Safety Report 5318592-7 (Version None)
Quarter: 2007Q2

REPORT INFORMATION
  Report Type: 
  Country: None (occurrence: None)
  Receive Date: 20070508
  Receipt Date: 20070427
  Transmission Date: 20071010
  Serious: Yes (Hospitalization, Other)
  Sender: FDA-Public Use
  Company Number: US-JNJFOC-20070307082

PATIENT
  Sex: Male

DRUGS (4)
  1. REMICADE [Suspect]
     Indication: UVEITIS
     Route: 042
     Dates: start: 20030408, end: 20060829
  2. REMICADE [Suspect]
     Indication: JUVENILE ARTHRITIS
     Dosage: 5-10 MG/KG
     Route: 042
     Dates: start: 20030408, end: 20060829
  3. MTX [Suspect]
     Indication: UVEITIS
  4. MTX [Suspect]
     Indication: JUVENILE ARTHRITIS
     Dosage: 0.5 MG-1.0 MG/KG

REACTIONS (2)
  - HODGKIN'S DISEASE [None]
  - UVEITIS [None]
